FAERS Safety Report 19823835 (Version 1)
Quarter: 2021Q3

REPORT INFORMATION
  Report Type: Report from Study
  Country: None (occurrence: US)
  Receive Date: 20210914
  Receipt Date: 20210914
  Transmission Date: 20211014
  Serious: Yes (Hospitalization)
  Sender: FDA-Public Use
  Company Number: US-ABBVIE-21K-163-3792718-00

PATIENT
  Sex: Male

DRUGS (2)
  1. VENCLEXTA [Suspect]
     Active Substance: VENETOCLAX
     Indication: CHRONIC LYMPHOCYTIC LEUKAEMIA
     Route: 048
     Dates: start: 202105, end: 20210902
  2. IMBRUVICA [Suspect]
     Active Substance: IBRUTINIB
     Indication: CHRONIC LYMPHOCYTIC LEUKAEMIA
     Route: 048
     Dates: start: 201811, end: 202101

REACTIONS (7)
  - Muscle spasms [Recovered/Resolved]
  - Unevaluable event [Unknown]
  - Blood magnesium abnormal [Unknown]
  - Blood glucose abnormal [Unknown]
  - White blood cell count abnormal [Unknown]
  - Pain in extremity [Unknown]
  - Nodule [Unknown]
